FAERS Safety Report 21772512 (Version 1)
Quarter: 2022Q4

REPORT INFORMATION
  Report Type: Spontaneous
  Country: DK (occurrence: DK)
  Receive Date: 20221223
  Receipt Date: 20221223
  Transmission Date: 20230112
  Serious: Yes (Other)
  Sender: FDA-Public Use
  Company Number: None

PATIENT
  Age: 52 Year
  Sex: Female

DRUGS (1)
  1. PREDNISOLONE [Suspect]
     Active Substance: PREDNISOLONE
     Indication: Diarrhoea
     Dosage: STRENGTH: UNKNOWN, DOSE: VARYING FROM 50 MG TO 100 MG, THERAPY END DATE : NASK
     Route: 065
     Dates: start: 20200624

REACTIONS (4)
  - Meningitis aseptic [Recovered/Resolved]
  - Visual impairment [Unknown]
  - Paraesthesia [Unknown]
  - Cataract [Not Recovered/Not Resolved]

NARRATIVE: CASE EVENT DATE: 20200101
